FAERS Safety Report 5000790-3 (Version None)
Quarter: 2006Q2

REPORT INFORMATION
  Report Type: 
  Country: None (occurrence: None)
  Receive Date: 20060512
  Receipt Date: 20060224
  Transmission Date: 20061013
  Serious: Yes (Hospitalization)
  Sender: FDA-Public Use
  Company Number: US-MERCK-0602USA05902

PATIENT
  Age: 66 Year
  Sex: Female
  Weight: 90 kg

DRUGS (7)
  1. VIOXX [Suspect]
     Indication: BACK PAIN
     Route: 048
     Dates: start: 20040331, end: 20040421
  2. VIOXX [Suspect]
     Route: 048
     Dates: start: 20031028, end: 20040424
  3. FROVA [Concomitant]
     Route: 065
  4. PREDNISONE [Concomitant]
     Route: 065
  5. TRAMADOLOR [Concomitant]
     Route: 065
  6. PREMARIN [Concomitant]
     Route: 065
  7. ULTRAM [Concomitant]
     Route: 065

REACTIONS (6)
  - BLADDER DISORDER [None]
  - BLOOD CHOLESTEROL INCREASED [None]
  - CEREBROVASCULAR ACCIDENT [None]
  - DIVERTICULITIS [None]
  - HYPERTENSION [None]
  - PELVIC DEFORMITY [None]
